FAERS Safety Report 23953407 (Version 1)
Quarter: 2024Q2

REPORT INFORMATION
  Report Type: Spontaneous
  Country: US (occurrence: US)
  Receive Date: 20240608
  Receipt Date: 20240608
  Transmission Date: 20240716
  Serious: Yes (Other)
  Sender: FDA-Public Use
  Company Number: US-ABBVIE-5791861

PATIENT
  Sex: Female

DRUGS (1)
  1. RESTASIS [Suspect]
     Active Substance: CYCLOSPORINE
     Indication: Dry eye
     Dosage: FORM STRENGTH: 0.5 MILLIGRAM/MILLILITERS (CYCLOSPORINE 0.5MG/ML EML )?START DATE TEXT: 3-5 YEARS AGO
     Route: 047
     Dates: start: 2019

REACTIONS (4)
  - Retinal detachment [Unknown]
  - Vitreous floaters [Unknown]
  - Multiple use of single-use product [Not Recovered/Not Resolved]
  - Cataract [Unknown]
